FAERS Safety Report 17158990 (Version 6)
Quarter: 2020Q3

REPORT INFORMATION
  Report Type: Spontaneous
  Country: US (occurrence: US)
  Receive Date: 20191216
  Receipt Date: 20200930
  Transmission Date: 20201102
  Serious: Yes (Death, Hospitalization, Other)
  Sender: FDA-Public Use
  Company Number: US-PFIZER INC-2014247767

PATIENT
  Age: 58 Year
  Sex: Female

DRUGS (16)
  1. TRULICITY [Concomitant]
     Active Substance: DULAGLUTIDE
     Indication: TYPE 2 DIABETES MELLITUS
     Dosage: UNK (0.75 MG/0.5 ML)
     Dates: start: 20160727
  2. NOVOLOG [Concomitant]
     Active Substance: INSULIN ASPART
     Indication: TYPE 2 DIABETES MELLITUS
     Dosage: 34 IU, 2X/DAY BEFORE BREAKFAST/DINNER
     Dates: start: 20150924
  3. METFORMIN [Concomitant]
     Active Substance: METFORMIN HYDROCHLORIDE
     Dosage: UNK
     Dates: start: 20140529
  4. GLIMEPIRIDE. [Concomitant]
     Active Substance: GLIMEPIRIDE
     Dosage: 4 MG, UNK
     Dates: start: 20130610
  5. HYDROCHLOROTHIAZIDE/LOSARTAN [Concomitant]
     Active Substance: HYDROCHLOROTHIAZIDE\LOSARTAN
     Dosage: UNK
     Dates: start: 20160816
  6. AMARYL [Concomitant]
     Active Substance: GLIMEPIRIDE
     Indication: TYPE 2 DIABETES MELLITUS
     Dosage: 4 MG, 2X/DAY
     Route: 048
  7. METFORMIN HYDROCHLORIDE. [Concomitant]
     Active Substance: METFORMIN HYDROCHLORIDE
     Indication: TYPE 2 DIABETES MELLITUS
     Dosage: 1000 MG, 2X/DAY
     Route: 048
  8. TRADJENTA [Concomitant]
     Active Substance: LINAGLIPTIN
     Dosage: 5 MG, UNK
     Dates: start: 20150319
  9. TYLENOL EXTRA STRENGTH [Concomitant]
     Active Substance: ACETAMINOPHEN
     Dosage: 500 MG, UNK
     Dates: start: 20141218
  10. LYRICA [Suspect]
     Active Substance: PREGABALIN
     Indication: PAIN
  11. BETAMETHASONE VALERATE. [Concomitant]
     Active Substance: BETAMETHASONE VALERATE
     Dosage: UNK
     Dates: start: 20150924
  12. NOVOLOG [Concomitant]
     Active Substance: INSULIN ASPART
     Dosage: UNK
  13. TRULICITY [Concomitant]
     Active Substance: DULAGLUTIDE
     Dosage: UNK, WEEKLY (1.5 MG/0.5 ML) (SUNDAY)
  14. LOSARTAN. [Concomitant]
     Active Substance: LOSARTAN
     Dosage: UNK
  15. LYRICA [Suspect]
     Active Substance: PREGABALIN
     Indication: NEUROPATHY PERIPHERAL
     Dosage: UNK
  16. LYRICA [Suspect]
     Active Substance: PREGABALIN
     Indication: DIABETIC NEUROPATHY
     Dosage: 500 MG, DAILY (100 MG 5 TIMES A DAY)
     Route: 048
     Dates: start: 20161021

REACTIONS (7)
  - Spinal fracture [Unknown]
  - White blood cell count decreased [Unknown]
  - Illness [Unknown]
  - Metastases to spine [Unknown]
  - Metastases to lung [Unknown]
  - Breast cancer stage IV [Unknown]
  - Death [Fatal]

NARRATIVE: CASE EVENT DATE: 2019
